FAERS Safety Report 5221298-6 (Version None)
Quarter: 2007Q1

REPORT INFORMATION
  Report Type: 
  Country: None (occurrence: None)
  Receive Date: 20061201
  Receipt Date: 20060707
  Transmission Date: 20070707
  Serious: No
  Sender: FDA-Public Use
  Company Number: 2006PV017178

PATIENT
  Age: 68 Year
  Sex: Female
  Weight: 115.6672 kg

DRUGS (9)
  1. BYETTA [Suspect]
     Indication: DIABETES MELLITUS NON-INSULIN-DEPENDENT
     Dosage: SEE IMAGE
     Route: 058
     Dates: start: 20060601, end: 20060101
  2. BYETTA [Suspect]
     Indication: DIABETES MELLITUS NON-INSULIN-DEPENDENT
     Dosage: SEE IMAGE
     Route: 058
     Dates: start: 20060501, end: 20060601
  3. BYETTA [Suspect]
     Indication: DIABETES MELLITUS NON-INSULIN-DEPENDENT
     Dosage: SEE IMAGE
     Route: 058
     Dates: start: 20060701
  4. ACTOS /USA/ [Concomitant]
  5. GLUCOPHAGE [Concomitant]
  6. ZESTORETIC [Concomitant]
  7. MIRAPEX [Concomitant]
  8. ZOCOR [Concomitant]
  9. LASIX [Concomitant]

REACTIONS (7)
  - BLOOD GLUCOSE DECREASED [None]
  - HYPERHIDROSIS [None]
  - MEDICATION ERROR [None]
  - NAUSEA [None]
  - THERAPEUTIC RESPONSE UNEXPECTED [None]
  - VOMITING [None]
  - WEIGHT DECREASED [None]
